FAERS Safety Report 4923470-9 (Version None)
Quarter: 2006Q1

REPORT INFORMATION
  Report Type: 
  Country: None (occurrence: None)
  Receive Date: 20060227
  Receipt Date: 20050918
  Transmission Date: 20060701
  Serious: Yes (Death)
  Sender: FDA-Public Use
  Company Number: PHHO2005CA14787

PATIENT
  Age: 68 Year
  Sex: Female

DRUGS (6)
  1. RISPERDAL [Concomitant]
  2. SINEMET [Concomitant]
  3. ASPIRIN [Concomitant]
  4. COGENTIN [Concomitant]
  5. CLOZAPINE [Suspect]
     Indication: PARKINSON'S DISEASE
     Dates: start: 20050801, end: 20050901
  6. CLOZARIL [Suspect]
     Dates: start: 20050629, end: 20050701

REACTIONS (3)
  - ILEUS PARALYTIC [None]
  - PNEUMONIA ASPIRATION [None]
  - RESPIRATORY FAILURE [None]
